FAERS Safety Report 12928125 (Version 2)
Quarter: 2016Q4

REPORT INFORMATION
  Report Type: Spontaneous
  Country: CA (occurrence: CA)
  Receive Date: 20161110
  Receipt Date: 20161117
  Transmission Date: 20170207
  Serious: Yes (Hospitalization, Other)
  Sender: FDA-Public Use
  Company Number: CA-ORION CORPORATION ORION PHARMA-TREX2016-2199

PATIENT
  Age: 48 Year
  Sex: Female

DRUGS (7)
  1. ORENCIA [Suspect]
     Active Substance: ABATACEPT
     Route: 065
     Dates: end: 20161031
  2. SULFASALAZINE. [Concomitant]
     Active Substance: SULFASALAZINE
     Indication: RHEUMATOID ARTHRITIS
     Route: 065
     Dates: start: 201508
  3. NAPROSYN [Concomitant]
     Active Substance: NAPROXEN
     Route: 065
  4. METHOTREXATE (TRADE NAME UNKNOWN) [Suspect]
     Active Substance: METHOTREXATE
     Indication: RHEUMATOID ARTHRITIS
     Route: 065
  5. HYDROXYCHLOROQUINE [Suspect]
     Active Substance: HYDROXYCHLOROQUINE
     Route: 065
  6. LEFLUNOMIDE. [Suspect]
     Active Substance: LEFLUNOMIDE
     Route: 065
  7. ENBREL [Suspect]
     Active Substance: ETANERCEPT
     Indication: RHEUMATOID ARTHRITIS
     Route: 065

REACTIONS (14)
  - Type 2 diabetes mellitus [Unknown]
  - Wound infection [Unknown]
  - Arthralgia [Unknown]
  - Drug ineffective [Unknown]
  - Infection [Unknown]
  - Hip arthroplasty [Unknown]
  - Hand deformity [Unknown]
  - Foot deformity [Unknown]
  - Amnesia [Unknown]
  - Drug intolerance [Unknown]
  - Dislocation of vertebra [Unknown]
  - Ankle deformity [Unknown]
  - Knee arthroplasty [Unknown]
  - Delirium [Unknown]

NARRATIVE: CASE EVENT DATE: 2013
